FAERS Safety Report 17695014 (Version 3)
Quarter: 2020Q4

REPORT INFORMATION
  Report Type: Spontaneous
  Country: US (occurrence: US)
  Receive Date: 20200422
  Receipt Date: 20201007
  Transmission Date: 20210113
  Serious: Yes (Other)
  Sender: FDA-Public Use
  Company Number: US-VIFOR (INTERNATIONAL) INC.-VIT-2020-05042

PATIENT
  Age: 60 Year
  Sex: Female

DRUGS (1)
  1. VELTASSA [Suspect]
     Active Substance: PATIROMER
     Indication: HYPERKALAEMIA
     Route: 048
     Dates: start: 20160708

REACTIONS (12)
  - Depressed mood [Unknown]
  - Product dose omission issue [Unknown]
  - Dizziness [Not Recovered/Not Resolved]
  - Pain [Unknown]
  - Fall [Unknown]
  - Somnolence [Unknown]
  - Spinal operation [Unknown]
  - Neoplasm [Unknown]
  - Chest injury [Unknown]
  - Hernia [Unknown]
  - Musculoskeletal chest pain [Not Recovered/Not Resolved]
  - Pain in extremity [Unknown]

NARRATIVE: CASE EVENT DATE: 202007
